FAERS Safety Report 16823818 (Version 1)
Quarter: 2019Q3

REPORT INFORMATION
  Report Type: Spontaneous
  Country: GR (occurrence: GR)
  Receive Date: 20190918
  Receipt Date: 20190918
  Transmission Date: 20191005
  Serious: Yes (Other)
  Sender: FDA-Public Use
  Company Number: GR-JNJFOC-20190914161

PATIENT
  Age: 61 Year
  Sex: Female
  Weight: 155 kg

DRUGS (3)
  1. VENORUTON                          /00027704/ [Concomitant]
     Route: 065
  2. DEPON MAXIMUM [Concomitant]
     Route: 065
  3. STELARA [Suspect]
     Active Substance: USTEKINUMAB
     Indication: PSORIATIC ARTHROPATHY
     Route: 030
     Dates: start: 20190301

REACTIONS (3)
  - Metrorrhagia [Recovered/Resolved]
  - Incorrect route of product administration [Unknown]
  - Off label use [Unknown]

NARRATIVE: CASE EVENT DATE: 20190726
